FAERS Safety Report 7430958-8 (Version None)
Quarter: 2011Q2

REPORT INFORMATION
  Report Type: 
  Country: None (occurrence: None)
  Receive Date: 20110421
  Receipt Date: 20110414
  Transmission Date: 20111010
  Serious: Yes (Hospitalization, Other)
  Sender: FDA-Public Use
  Company Number: PHHY2010TW87821

PATIENT
  Age: 58 Year
  Sex: Female

DRUGS (7)
  1. MIRTAZAPINE [Suspect]
     Dosage: 15 MG, QD
     Dates: start: 19990401, end: 20070401
  2. PAROXETINE HCL [Suspect]
     Dosage: 10 TO 40 MG/DAY
     Dates: start: 19990401, end: 20070401
  3. VENLAFAXINE HCL [Suspect]
     Dosage: 37.5 TO 225 MG/DAY
     Dates: start: 19990401, end: 20070401
  4. ESCITALOPRAM [Suspect]
     Dosage: 10 MG, QD
     Dates: start: 19990401, end: 20070401
  5. FLUOXETINE [Suspect]
     Dosage: 20 TO 40 MG/DAY
     Dates: start: 19990401, end: 20070401
  6. DULOXETINE [Suspect]
     Dosage: 30 TO 60 MG/DAY
     Dates: start: 20070401
  7. TRAZODONE HCL [Suspect]
     Dosage: 15 TO 125 MG/DAY
     Dates: start: 19990401, end: 20070401

REACTIONS (6)
  - TRISMUS [None]
  - CHEST DISCOMFORT [None]
  - INSOMNIA [None]
  - DEPRESSED MOOD [None]
  - TARDIVE DYSKINESIA [None]
  - DYSTONIA [None]
